FAERS Safety Report 7027660-3 (Version None)
Quarter: 2010Q4

REPORT INFORMATION
  Report Type: 
  Country: None (occurrence: None)
  Receive Date: 20101004
  Receipt Date: 20100927
  Transmission Date: 20110411
  Serious: Yes (Other)
  Sender: FDA-Public Use
  Company Number: US-AMGEN-KDL437043

PATIENT
  Sex: Female
  Weight: 3.52 kg

DRUGS (5)
  1. ENBREL [Suspect]
     Route: 064
     Dates: start: 20060301
  2. PREDNISONE [Concomitant]
     Route: 064
  3. LOVAZA [Concomitant]
     Route: 064
  4. CALCIUM [Concomitant]
     Route: 064
  5. IRON [Concomitant]
     Route: 064

REACTIONS (1)
  - LANGERHANS' CELL HISTIOCYTOSIS [None]
